FAERS Safety Report 18214121 (Version 1)
Quarter: 2020Q3

REPORT INFORMATION
  Report Type: Spontaneous
  Country: DE (occurrence: DE)
  Receive Date: 20200831
  Receipt Date: 20200831
  Transmission Date: 20201103
  Serious: Yes (Life-Threatening, Hospitalization)
  Sender: FDA-Public Use
  Company Number: DE-PFIZER INC-2020334663

PATIENT
  Age: 38 Year
  Sex: Female

DRUGS (8)
  1. L?THYROXIN [LEVOTHYROXINE] [Concomitant]
     Active Substance: LEVOTHYROXINE SODIUM
     Dosage: 100 UG
     Route: 048
  2. CYCLOPHOSPHAMIDE. [Suspect]
     Active Substance: CYCLOPHOSPHAMIDE
     Indication: BREAST CANCER
     Route: 042
     Dates: start: 20200727, end: 20200727
  3. UROMITEXAN [Concomitant]
     Active Substance: MESNA
  4. DEXAMETHASON [DEXAMETHASONE] [Concomitant]
     Active Substance: DEXAMETHASONE
  5. PEGFILGRASTIM [Suspect]
     Active Substance: PEGFILGRASTIM
     Dosage: STRENGTH 6 MG
     Route: 058
  6. LORATADINE. [Concomitant]
     Active Substance: LORATADINE
  7. EPIRUBICIN HCL [Suspect]
     Active Substance: EPIRUBICIN HYDROCHLORIDE
     Indication: BREAST CANCER
     Route: 042
     Dates: start: 20200727, end: 20200727
  8. NETUPITANT/PALONOSETRON HYDROCHLORIDE [Concomitant]

REACTIONS (6)
  - Thrombocytopenia [Unknown]
  - Leukopenia [Unknown]
  - Localised infection [Unknown]
  - Mucosal inflammation [Unknown]
  - Cachexia [Unknown]
  - Anaemia [Unknown]

NARRATIVE: CASE EVENT DATE: 20200805
